FAERS Safety Report 12934139 (Version 8)
Quarter: 2017Q1

REPORT INFORMATION
  Report Type: Spontaneous
  Country: US (occurrence: US)
  Receive Date: 20161111
  Receipt Date: 20170126
  Transmission Date: 20170428
  Serious: Yes (Other)
  Sender: FDA-Public Use
  Company Number: US-009507513-1611USA001547

PATIENT
  Age: 24 Year
  Sex: Female
  Weight: 68.03 kg

DRUGS (2)
  1. PROZAC [Concomitant]
     Active Substance: FLUOXETINE HYDROCHLORIDE
     Dosage: UNK
  2. NEXPLANON [Suspect]
     Active Substance: ETONOGESTREL
     Indication: CONTRACEPTION
     Dosage: ONE ROD PER 3 YEARS
     Route: 059
     Dates: start: 20160729, end: 20170123

REACTIONS (4)
  - Abortion induced [Unknown]
  - Breech presentation [Unknown]
  - Maternal exposure during pregnancy [Unknown]
  - Oligohydramnios [Unknown]

NARRATIVE: CASE EVENT DATE: 2016
